FAERS Safety Report 19214744 (Version 4)
Quarter: 2021Q2

REPORT INFORMATION
  Report Type: Report from Study
  Country: None (occurrence: AR)
  Receive Date: 20210504
  Receipt Date: 20210618
  Transmission Date: 20210717
  Serious: Yes (Death, Life-Threatening, Hospitalization)
  Sender: FDA-Public Use
  Company Number: AR-ABBVIE-21P-007-3887824-00

PATIENT
  Age: 67 Year
  Sex: Female

DRUGS (20)
  1. UPADACITINIB [Suspect]
     Active Substance: UPADACITINIB
     Indication: RHEUMATOID ARTHRITIS
     Route: 048
     Dates: start: 20170809, end: 20180821
  2. ROSUVASTATIN. [Concomitant]
     Active Substance: ROSUVASTATIN
     Indication: DYSLIPIDAEMIA
     Route: 048
     Dates: start: 2015
  3. ENALAPRIL [Concomitant]
     Active Substance: ENALAPRIL
     Indication: HYPERTENSION
     Route: 048
     Dates: start: 2011
  4. METHOTREXATE. [Concomitant]
     Active Substance: METHOTREXATE
     Indication: RHEUMATOID ARTHRITIS
     Route: 048
     Dates: start: 201112, end: 20171101
  5. ACICLOVIR [Concomitant]
     Active Substance: ACYCLOVIR
     Indication: HERPES OPHTHALMIC
     Route: 048
     Dates: start: 20180410
  6. ACYCLOVIR OPHTHALMIC OINTMENT [Concomitant]
     Indication: HERPES OPHTHALMIC
     Route: 047
     Dates: start: 20180410
  7. AMOXICILLINE [Concomitant]
     Active Substance: AMOXICILLIN
     Indication: URINARY TRACT INFECTION
     Route: 048
     Dates: start: 20180704
  8. VALACYCLOVIR [Concomitant]
     Active Substance: VALACYCLOVIR HYDROCHLORIDE
     Route: 048
     Dates: start: 20200512
  9. SOAP WITH CHLORHEXIDINE [Concomitant]
     Indication: ECZEMA HERPETICUM
     Route: 061
     Dates: start: 20200505
  10. SULBACTAM [Concomitant]
     Active Substance: SULBACTAM
     Indication: URINARY TRACT INFECTION
     Route: 048
     Dates: start: 20180704
  11. METHOTREXATE. [Concomitant]
     Active Substance: METHOTREXATE
     Route: 048
     Dates: start: 20171102
  12. ACYCLOVIR OPHTHALMIC OINTMENT [Concomitant]
     Route: 047
     Dates: start: 20171115
  13. METRONIDAZOLE. [Concomitant]
     Active Substance: METRONIDAZOLE
     Indication: PAPULOPUSTULAR ROSACEA
     Route: 061
     Dates: start: 20190313
  14. LEVOTIROXINE [Concomitant]
     Active Substance: LEVOTHYROXINE
     Indication: HYPOTHYROIDISM
     Route: 048
     Dates: start: 2011
  15. TOLERIANE CREAM [Concomitant]
     Indication: PAPULOPUSTULAR ROSACEA
     Route: 048
     Dates: start: 20190605
  16. VALACYCLOVIR [Concomitant]
     Active Substance: VALACYCLOVIR HYDROCHLORIDE
     Indication: ECZEMA HERPETICUM
     Route: 048
     Dates: start: 20200430, end: 20200511
  17. PLACEBO [Suspect]
     Active Substance: UNSPECIFIED INGREDIENT
     Indication: RHEUMATOID ARTHRITIS
     Route: 065
     Dates: start: 20170503, end: 20170808
  18. UPADACITINIB [Suspect]
     Active Substance: UPADACITINIB
     Indication: RHEUMATOID ARTHRITIS
     Route: 048
     Dates: start: 20180822
  19. FOLIC ACID. [Concomitant]
     Active Substance: FOLIC ACID
     Indication: VITAMIN SUPPLEMENTATION
     Route: 048
     Dates: start: 2011
  20. PREDNISONE. [Concomitant]
     Active Substance: PREDNISONE
     Indication: RHEUMATOID ARTHRITIS
     Route: 048
     Dates: start: 201110

REACTIONS (1)
  - Pneumonia [Fatal]

NARRATIVE: CASE EVENT DATE: 20210330
